FAERS Safety Report 23440734 (Version 1)
Quarter: 2024Q1

REPORT INFORMATION
  Report Type: Spontaneous
  Country: US (occurrence: US)
  Receive Date: 20240125
  Receipt Date: 20240125
  Transmission Date: 20240410
  Serious: Yes (Hospitalization)
  Sender: FDA-Public Use
  Company Number: US-ASPIRO-ASP2024US00123

PATIENT
  Age: 74 Year
  Sex: Female

DRUGS (3)
  1. LIDOCAINE [Suspect]
     Active Substance: LIDOCAINE
     Indication: Lumbar radiculopathy
     Dosage: 6 MILLILITER SOLUTION CONTAINING 2 MILLILITER OF 1 PERCENT LIDOCAINE
     Route: 008
  2. METHYLPREDNISOLONE [Suspect]
     Active Substance: METHYLPREDNISOLONE
     Indication: Lumbar radiculopathy
     Dosage: 80 MILLIGRAM (2 MILLILITER OF 40 MILLIGRAM PER LITER DEPO- MEDROL) AND 2 MILLILITER OF NORMAL SALINE
     Route: 008
  3. IOHEXOL [Suspect]
     Active Substance: IOHEXOL
     Indication: Epidural injection
     Dosage: 1 MILLILITER
     Route: 008

REACTIONS (1)
  - Meningitis aseptic [Recovered/Resolved]
